FAERS Safety Report 11097309 (Version 1)
Quarter: 2015Q2

REPORT INFORMATION
  Report Type: Spontaneous
  Country: US (occurrence: None)
  Receive Date: 20150506
  Receipt Date: 20150506
  Transmission Date: 20150821
  Serious: Yes (Other)
  Sender: FDA-Public Use
  Company Number: None

PATIENT
  Age: 87 Year
  Sex: Male

DRUGS (1)
  1. CAPECITABINE. [Suspect]
     Active Substance: CAPECITABINE
     Indication: COLON CANCER
     Dosage: 1000MG, TWICE DAY X 14D, ORAL
     Route: 048
     Dates: start: 20150303

REACTIONS (6)
  - Diarrhoea [None]
  - Palmar-plantar erythrodysaesthesia syndrome [None]
  - Erythema [None]
  - Rash [None]
  - Pruritus [None]
  - Fatigue [None]

NARRATIVE: CASE EVENT DATE: 20150505
